FAERS Safety Report 5339566-6 (Version None)
Quarter: 2007Q2

REPORT INFORMATION
  Report Type: 
  Country: None (occurrence: None)
  Receive Date: 20070524
  Receipt Date: 20070516
  Transmission Date: 20071010
  Serious: Yes (Other)
  Sender: FDA-Public Use
  Company Number: 2007308711

PATIENT
  Age: 70 Year
  Sex: Male
  Weight: 78.5 kg

DRUGS (16)
  1. BENADRYL [Suspect]
     Indication: FOOD ALLERGY
     Dosage: 2 TEASPOONS OCCASIONALLY, ORAL
     Route: 048
     Dates: start: 20070219, end: 20070221
  2. COUMADIN [Concomitant]
  3. ASPIRIN [Concomitant]
  4. COREG [Concomitant]
  5. MEXILETINE HCL [Concomitant]
  6. VITAMIN C (VITAMIN C) [Concomitant]
  7. AMIODARONE HCL [Concomitant]
  8. LASIX [Concomitant]
  9. DIOVAN [Concomitant]
  10. DIGOXIN [Concomitant]
  11. SYNTHROID [Concomitant]
  12. GLUCOSAMINE (GLUCOSAMINE) [Concomitant]
  13. MULTIVITAMIN [Concomitant]
  14. ACID REDUCER (ANTACIDS) [Concomitant]
  15. VITAMIN B12 [Concomitant]
  16. VITAMIN E [Concomitant]

REACTIONS (1)
  - INTERNATIONAL NORMALISED RATIO INCREASED [None]
